FAERS Safety Report 25396514 (Version 1)
Quarter: 2025Q2

REPORT INFORMATION
  Report Type: Spontaneous
  Country: US (occurrence: US)
  Receive Date: 20250604
  Receipt Date: 20250604
  Transmission Date: 20250717
  Serious: No
  Sender: ARS PHARMACEUTICALS OPERATIONS, INC.
  Company Number: US-ARS PHARMACEUTICALS OPERATIONS, INC.-2025ARP00045

PATIENT
  Age: 24 Year
  Sex: Female
  Weight: 56.689 kg

DRUGS (4)
  1. NEFFY [Suspect]
     Active Substance: EPINEPHRINE
     Indication: Anaphylactic reaction
     Route: 045
     Dates: start: 20250405, end: 20250405
  2. NEFFY [Suspect]
     Active Substance: EPINEPHRINE
     Indication: Hypersensitivity
  3. KETOTIFEN [Concomitant]
     Active Substance: KETOTIFEN
  4. FLONASE [Concomitant]
     Active Substance: FLUTICASONE PROPIONATE

REACTIONS (6)
  - Nasal mucosal disorder [Recovering/Resolving]
  - Rhinalgia [Recovering/Resolving]
  - Epistaxis [Recovering/Resolving]
  - Nausea [Recovered/Resolved]
  - Sneezing [Recovered/Resolved]
  - Abdominal pain upper [Recovered/Resolved]

NARRATIVE: CASE EVENT DATE: 20250405
